FAERS Safety Report 15681847 (Version 4)
Quarter: 2019Q1

REPORT INFORMATION
  Report Type: Spontaneous
  Country: FI (occurrence: FI)
  Receive Date: 20181203
  Receipt Date: 20190118
  Transmission Date: 20190417
  Serious: Yes (Other)
  Sender: FDA-Public Use
  Company Number: PHHY2018FI170405

PATIENT
  Age: 51 Year
  Sex: Male

DRUGS (3)
  1. IBUPROFEN. [Concomitant]
     Active Substance: IBUPROFEN
     Indication: PRODUCT USED FOR UNKNOWN INDICATION
     Dosage: UNK
     Route: 065
     Dates: start: 201808
  2. COSENTYX [Suspect]
     Active Substance: SECUKINUMAB
     Indication: PSORIASIS
     Dosage: 300 MG, QW (WEEK 1, 2, 3, 4)
     Route: 058
     Dates: start: 20180102
  3. COSENTYX [Suspect]
     Active Substance: SECUKINUMAB
     Dosage: 300 MG, QMO
     Route: 058
     Dates: end: 2018

REACTIONS (13)
  - Epiglottitis [Not Recovered/Not Resolved]
  - Laryngeal discomfort [Not Recovered/Not Resolved]
  - Larynx irritation [Unknown]
  - Pharyngeal oedema [Recovering/Resolving]
  - Hypertension [Unknown]
  - Dyspnoea [Not Recovered/Not Resolved]
  - Sensation of foreign body [Unknown]
  - Dysphonia [Unknown]
  - Stridor [Not Recovered/Not Resolved]
  - Cough [Unknown]
  - Laryngeal oedema [Not Recovered/Not Resolved]
  - Tonsillar hypertrophy [Unknown]
  - Oedema mucosal [Unknown]

NARRATIVE: CASE EVENT DATE: 2018
